FAERS Safety Report 9394033 (Version 1)
Quarter: 2013Q3

REPORT INFORMATION
  Report Type: Spontaneous
  Country: AU (occurrence: AU)
  Receive Date: 20130710
  Receipt Date: 20130710
  Transmission Date: 20140515
  Serious: Yes (Hospitalization)
  Sender: FDA-Public Use
  Company Number: AU-UCBSA-090966

PATIENT
  Age: 21 Year
  Sex: Female

DRUGS (3)
  1. KEPPRA [Suspect]
     Indication: CONVULSION
     Dosage: 250 MG IN THE MORNING, 500 MG AT NIGHT
     Route: 048
     Dates: start: 20121025
  2. KEPPRA [Suspect]
     Indication: CONVULSION
     Dates: start: 201208, end: 201208
  3. MULTIVITAMINS [Concomitant]
     Indication: VITAMIN SUPPLEMENTATION
     Dosage: 1 DAILY
     Route: 048
     Dates: start: 2012

REACTIONS (1)
  - Ganglioglioma [Recovered/Resolved]
